FAERS Safety Report 9184112 (Version 1)
Quarter: 2012Q4

REPORT INFORMATION
  Report Type: 
  Country: CN (occurrence: CN)
  Receive Date: 20121031
  Receipt Date: 20121031
  Transmission Date: 20130627
  Serious: Yes (Death, Other)
  Sender: FDA-Public Use
  Company Number: CN-OTSUKA-US-2012-11564

PATIENT
  Age: 8 Month
  Sex: Female

DRUGS (8)
  1. BUSULFEX [Suspect]
     Indication: BONE MARROW CONDITIONING REGIMEN
     Route: 042
  2. CYCLOPHOSPHAMIDE [Suspect]
     Indication: BONE MARROW CONDITIONING REGIMEN
     Route: 042
  3. MELPHALAN [Suspect]
     Indication: BONE MARROW CONDITIONING REGIMEN
  4. FLUCONAZOLE [Concomitant]
     Indication: INFECTION PROPHYLAXIS
  5. ACYCLOVIR [Concomitant]
     Indication: INFECTION PROPHYLAXIS
  6. COTRIMOXAZOLE [Concomitant]
     Indication: INFECTION PROPHYLAXIS
  7. CYCLOSPORINE [Concomitant]
     Indication: PROPHYLAXIS AGAINST GRAFT VERSUS HOST DISEASE
  8. MYCOPHENOLATE MOFETIL [Concomitant]
     Indication: PROPHYLAXIS AGAINST GRAFT VERSUS HOST DISEASE

REACTIONS (5)
  - Idiopathic pneumonia syndrome [Fatal]
  - Acute graft versus host disease in skin [Unknown]
  - Acute graft versus host disease in intestine [Unknown]
  - Acute graft versus host disease in liver [Unknown]
  - Bacterial infection [None]
